FAERS Safety Report 7118046-1 (Version None)
Quarter: 2010Q4

REPORT INFORMATION
  Report Type: 
  Country: None (occurrence: None)
  Receive Date: 20101123
  Receipt Date: 20101108
  Transmission Date: 20110411
  Serious: Yes (Hospitalization, Other)
  Sender: FDA-Public Use
  Company Number: US-BAYER-201014105NA

PATIENT
  Age: 41 Year
  Sex: Female
  Weight: 88 kg

DRUGS (4)
  1. YAZ [Suspect]
     Indication: ORAL CONTRACEPTION
     Dosage: 1 TAB / DAY
     Route: 048
     Dates: start: 20070101, end: 20091001
  2. YASMIN [Suspect]
     Indication: ORAL CONTRACEPTION
     Dosage: 1 TAB / DAY
     Route: 048
     Dates: start: 20021215, end: 20070625
  3. LOESTRIN 24 FE [Concomitant]
     Dates: start: 20091104
  4. PERCOCET [Concomitant]
     Indication: PAIN
     Dosage: 5/325 1 TABLET EVERY 4-6 HOURS AS NEEDED FOR PAIN
     Dates: start: 20090215

REACTIONS (6)
  - ABDOMINAL PAIN [None]
  - ABDOMINAL PAIN UPPER [None]
  - CHOLECYSTITIS CHRONIC [None]
  - CHOLELITHIASIS [None]
  - GALLBLADDER CHOLESTEROLOSIS [None]
  - NAUSEA [None]
